FAERS Safety Report 5715338-5 (Version None)
Quarter: 2008Q2

REPORT INFORMATION
  Report Type: 
  Country: None (occurrence: None)
  Receive Date: 20080423
  Receipt Date: 20080414
  Transmission Date: 20081010
  Serious: Yes (Disabling, Other)
  Sender: FDA-Public Use
  Company Number: US-MERCK-0705USA01439

PATIENT
  Age: 36 Year
  Sex: Female

DRUGS (2)
  1. FOSAMAX [Suspect]
     Indication: OSTEOPOROSIS
     Route: 048
     Dates: start: 20020101
  2. FOSAMAX [Suspect]
     Route: 048
     Dates: start: 20030707, end: 20050101

REACTIONS (15)
  - ANXIETY [None]
  - CELLULITIS [None]
  - CLAVICLE FRACTURE [None]
  - DEPRESSION [None]
  - HAEMANGIOMA OF LIVER [None]
  - HEPATIC CIRRHOSIS [None]
  - MEMORY IMPAIRMENT [None]
  - MUSCLE SPASTICITY [None]
  - NAUSEA [None]
  - ORAL INFECTION [None]
  - OSTEOMYELITIS [None]
  - OSTEONECROSIS [None]
  - PAIN IN JAW [None]
  - PULPITIS DENTAL [None]
  - TOOTH LOSS [None]
